FAERS Safety Report 16270446 (Version 1)
Quarter: 2019Q2

REPORT INFORMATION
  Report Type: Spontaneous
  Country: DE (occurrence: DE)
  Receive Date: 20190503
  Receipt Date: 20190503
  Transmission Date: 20190711
  Serious: Yes (Other)
  Sender: FDA-Public Use
  Company Number: DE-PFIZER INC-2019184846

PATIENT
  Age: 19 Year
  Sex: Female

DRUGS (2)
  1. QUETIAPINE FUMARATE. [Suspect]
     Active Substance: QUETIAPINE FUMARATE
     Dosage: 200 MG, 1X/DAY (RECEIVING THIS MEDICATION FOR ONE YEAR)
     Route: 065
  2. VENLAFAXINE HCL [Suspect]
     Active Substance: VENLAFAXINE HYDROCHLORIDE
     Dosage: 75 MG, 1X/DAY (RECEIVING THIS MEDICATION FOR ONE YEAR)
     Route: 065

REACTIONS (4)
  - Weight increased [Unknown]
  - Face oedema [Unknown]
  - Nephrotic syndrome [Unknown]
  - Oedema peripheral [Unknown]
